FAERS Safety Report 21966572 (Version 1)
Quarter: 2023Q1

REPORT INFORMATION
  Report Type: Spontaneous
  Country: US (occurrence: US)
  Receive Date: 20230208
  Receipt Date: 20230208
  Transmission Date: 20230417
  Serious: No
  Sender: FDA-Public Use
  Company Number: US-TAKEDA-2023TUS013430

PATIENT
  Sex: Female
  Weight: 61 kg

DRUGS (1)
  1. ENTYVIO [Suspect]
     Active Substance: VEDOLIZUMAB
     Indication: Colitis ulcerative
     Dosage: 300 MILLIGRAM
     Route: 042

REACTIONS (11)
  - Migraine [Unknown]
  - Bedridden [Unknown]
  - Illness [Unknown]
  - Tonsillar disorder [Unknown]
  - Abdominal distension [Unknown]
  - Chills [Recovered/Resolved]
  - Muscle spasms [Unknown]
  - Headache [Unknown]
  - Pyrexia [Recovered/Resolved]
  - Oropharyngeal pain [Unknown]
  - Product storage error [Unknown]
